FAERS Safety Report 9135770 (Version 1)
Quarter: 2013Q1

REPORT INFORMATION
  Report Type: Spontaneous
  Country: US (occurrence: US)
  Receive Date: 20130304
  Receipt Date: 20130304
  Transmission Date: 20140127
  Serious: No
  Sender: FDA-Public Use
  Company Number: US-PFIZER INC-2013073371

PATIENT
  Sex: Female

DRUGS (1)
  1. NEURONTIN [Suspect]
     Indication: NERVE INJURY
     Dosage: UNK
     Dates: start: 201302, end: 201302

REACTIONS (4)
  - Drug withdrawal syndrome [Unknown]
  - Nausea [Unknown]
  - Anxiety [Unknown]
  - Feeling of body temperature change [Unknown]
